FAERS Safety Report 23876721 (Version 1)
Quarter: 2024Q2

REPORT INFORMATION
  Report Type: Spontaneous
  Country: US (occurrence: US)
  Receive Date: 20240521
  Receipt Date: 20240521
  Transmission Date: 20240716
  Serious: Yes (Other)
  Sender: FDA-Public Use
  Company Number: US-GRAVITIPHARMA-GRA-2405-US-LIT-0138

PATIENT
  Age: 67 Year
  Sex: Male

DRUGS (5)
  1. BACLOFEN [Suspect]
     Active Substance: BACLOFEN
     Indication: Hiccups
  2. CHLORPROMAZINE [Suspect]
     Active Substance: CHLORPROMAZINE
     Indication: Hiccups
  3. METOCLOPRAMIDE [Suspect]
     Active Substance: METOCLOPRAMIDE
     Indication: Hiccups
  4. LIDOCAINE [Concomitant]
     Active Substance: LIDOCAINE
     Indication: Hiccups
  5. insulin drip [Concomitant]
     Indication: Hiccups
     Route: 041

REACTIONS (3)
  - Delirium [Unknown]
  - Off label use [Unknown]
  - Drug ineffective [Unknown]
